FAERS Safety Report 6073172-3 (Version None)
Quarter: 2009Q1

REPORT INFORMATION
  Report Type: 
  Country: None (occurrence: None)
  Receive Date: 20090211
  Receipt Date: 20090204
  Transmission Date: 20090719
  Serious: Yes (Hospitalization)
  Sender: FDA-Public Use
  Company Number: CA-AMGEN-QUU331800

PATIENT
  Sex: Male

DRUGS (5)
  1. ARANESP [Suspect]
     Indication: DRUG USE FOR UNKNOWN INDICATION
     Route: 058
     Dates: start: 20070801
  2. FOLIC ACID [Concomitant]
     Dates: start: 20070801
  3. PREDNISONE TAB [Concomitant]
     Dates: start: 20060101
  4. SALBUTAMOL [Concomitant]
     Dates: start: 20040101
  5. PREVACID [Concomitant]
     Dates: start: 20060101

REACTIONS (3)
  - CARDIAC FAILURE CONGESTIVE [None]
  - DRUG INEFFECTIVE [None]
  - HAEMOGLOBIN DECREASED [None]
